FAERS Safety Report 23841066 (Version 1)
Quarter: 2024Q2

REPORT INFORMATION
  Report Type: Other
  Country: DE (occurrence: None)
  Receive Date: 20240510
  Receipt Date: 20240510
  Transmission Date: 20240716
  Serious: Yes (Hospitalization)
  Sender: FDA-Public Use
  Company Number: DE-ROCHE-3556718

PATIENT
  Age: 74 Year
  Sex: Female

DRUGS (3)
  1. RITUXIMAB [Suspect]
     Active Substance: RITUXIMAB
     Indication: Neuromyelitis optica spectrum disorder
     Dosage: SHE RECEIVED RITUXIMAB TO TREAT HER NMOSD FROM 2012 TO 2023,
     Route: 041
  2. VALSARTAN [Concomitant]
     Active Substance: VALSARTAN
  3. CEFPODOXIME [Concomitant]
     Active Substance: CEFPODOXIME

REACTIONS (6)
  - Off label use [Unknown]
  - Hypertension [Unknown]
  - Visual impairment [Not Recovered/Not Resolved]
  - COVID-19 [Recovered/Resolved]
  - Pneumonia [Recovered/Resolved]
  - Cystitis noninfective [Recovered/Resolved]

NARRATIVE: CASE EVENT DATE: 20231101
